FAERS Safety Report 6711776-2 (Version None)
Quarter: 2010Q2

REPORT INFORMATION
  Report Type: 
  Country: None (occurrence: None)
  Receive Date: 20100505
  Receipt Date: 20100427
  Transmission Date: 20101027
  Serious: Yes (Other)
  Sender: FDA-Public Use
  Company Number: B0649415A

PATIENT
  Sex: Male

DRUGS (1)
  1. AVOLVE [Suspect]
     Indication: DYSURIA
     Dosage: .5MG PER DAY
     Route: 048
     Dates: start: 20100120, end: 20100331

REACTIONS (2)
  - BLOOD GLUCOSE INCREASED [None]
  - DIABETES MELLITUS [None]
